FAERS Safety Report 4526242-2 (Version None)
Quarter: 2004Q4

REPORT INFORMATION
  Report Type: 
  Country: None (occurrence: None)
  Receive Date: 20041214
  Receipt Date: 20041201
  Transmission Date: 20050328
  Serious: Yes (Death, Other)
  Sender: FDA-Public Use
  Company Number: JP-BRISTOL-MYERS SQUIBB COMPANY-12791281

PATIENT
  Age: 33 Year
  Sex: Male

DRUGS (20)
  1. PARAPLATIN [Suspect]
     Indication: LYMPHOMA
     Route: 042
     Dates: start: 19930101, end: 19930401
  2. VP-16 [Suspect]
     Indication: LYMPHOMA
     Dosage: PREV. THERAPY: MAR88-MAR89 JAN93-APR93 APR93-MAR-94 MAR94-AUG94
     Route: 042
     Dates: start: 19950301, end: 19960401
  3. CYCLOPHOSPHAMIDE [Suspect]
     Indication: LYMPHOMA
     Dosage: PREV. THERAPY: MAR88-MAR89 MAR92-JAN93
     Dates: start: 19940301, end: 19940801
  4. DOXORUBICIN HYDROCHLORIDE [Suspect]
     Indication: LYMPHOMA
     Dates: start: 19880301, end: 19890301
  5. METHOTREXATE [Suspect]
     Indication: LYMPHOMA
     Dosage: PREV. THERAPY: MAR88-MAR99
     Dates: start: 19980721, end: 19980907
  6. BLEOMYCIN SULFATE [Suspect]
     Indication: LYMPHOMA
     Dates: start: 19880301, end: 19890301
  7. IFOSFAMIDE [Suspect]
     Indication: LYMPHOMA
     Dosage: PREV THERAPY: JAN91-MAR92
     Dates: start: 19930101, end: 19930401
  8. VINCRISTINE SULFATE [Suspect]
     Indication: MYCOSIS FUNGOIDES
     Dosage: PREV. THERAPY: JAN91-MAR92 MAR88-MAR89
     Dates: start: 19920301, end: 19930101
  9. CLADRIBINE [Suspect]
     Indication: LYMPHOMA
     Route: 042
     Dates: start: 19981016, end: 19981123
  10. PREDNISOLONE [Suspect]
     Indication: LYMPHOMA
     Dosage: PREV. THERAPY: JAN91-MAR92 AUG90-JAN91 MAR88-MAR89
     Dates: start: 19920301, end: 19930601
  11. MITOXANTRONE [Suspect]
     Indication: LYMPHOMA
     Dates: start: 19940301, end: 19940801
  12. PROCARBAZINE [Suspect]
     Indication: LYMPHOMA
     Dosage: PREV. THERAPY: JAN91-MAR92 MAR88-MAR89
     Dates: start: 19920301, end: 19930101
  13. VDS [Suspect]
     Indication: LYMPHOMA
     Dosage: PREV. THERAPY: MAR88-MAR89
     Dates: start: 19900801, end: 19910101
  14. NIMUSTINE HCL [Suspect]
     Indication: LYMPHOMA
     Dates: start: 19900801, end: 19910101
  15. THP-ADRIAMYCIN [Suspect]
     Indication: LYMPHOMA
     Dates: start: 19900801, end: 19910101
  16. CYTARABINE [Suspect]
     Dates: start: 19940301, end: 19940801
  17. MELPHALAN [Suspect]
     Dates: start: 19940301, end: 19940801
  18. SOBUZOXANE [Suspect]
     Indication: LYMPHOMA
     Dates: start: 19950301, end: 19960401
  19. RITUXIMAB [Suspect]
     Indication: LYMPHOMA
     Dates: start: 19960605, end: 19970916
  20. RADIOTHERAPY [Concomitant]
     Indication: LYMPHOMA

REACTIONS (3)
  - DEATH [None]
  - MYELODYSPLASTIC SYNDROME [None]
  - TREATMENT RELATED SECONDARY MALIGNANCY [None]
